FAERS Safety Report 14165657 (Version 2)
Quarter: 2017Q4

REPORT INFORMATION
  Report Type: Spontaneous
  Country: CH (occurrence: CH)
  Receive Date: 20171107
  Receipt Date: 20171113
  Transmission Date: 20180321
  Serious: Yes (Hospitalization)
  Sender: FDA-Public Use
  Company Number: CH-JNJFOC-20171105275

PATIENT
  Age: 74 Year
  Sex: Female

DRUGS (30)
  1. KEPPRA [Suspect]
     Active Substance: LEVETIRACETAM
     Indication: PRODUCT USED FOR UNKNOWN INDICATION
     Route: 048
     Dates: start: 20170815, end: 20171006
  2. TENORMIN [Concomitant]
     Active Substance: ATENOLOL
     Route: 065
     Dates: end: 20170816
  3. ATARAX [Concomitant]
     Active Substance: HYDROXYZINE HYDROCHLORIDE
     Route: 065
     Dates: start: 20170818, end: 20170904
  4. TRAMAL [Suspect]
     Active Substance: TRAMADOL
     Indication: PAIN
     Route: 048
     Dates: start: 20170828, end: 20170901
  5. CONCOR [Concomitant]
     Active Substance: BISOPROLOL FUMARATE
     Route: 065
     Dates: start: 20170816
  6. INDERAL [Concomitant]
     Active Substance: PROPRANOLOL HYDROCHLORIDE
     Route: 065
     Dates: start: 20170814
  7. HALDOL [Suspect]
     Active Substance: HALOPERIDOL
     Indication: PRODUCT USED FOR UNKNOWN INDICATION
     Route: 048
     Dates: start: 20170914, end: 20171005
  8. MOTILIUM [Concomitant]
     Active Substance: DOMPERIDONE
     Route: 065
     Dates: start: 20170913
  9. CRESTOR [Concomitant]
     Active Substance: ROSUVASTATIN CALCIUM
     Route: 065
     Dates: end: 20170814
  10. ZANIDIP [Concomitant]
     Active Substance: LERCANIDIPINE HYDROCHLORIDE
     Route: 065
     Dates: end: 20170814
  11. CLEXANE [Concomitant]
     Active Substance: ENOXAPARIN SODIUM
     Route: 065
     Dates: start: 20170815, end: 20170829
  12. ASPIRIN CARDIO [Concomitant]
     Active Substance: ASPIRIN
     Route: 065
  13. POTASSIUM [Concomitant]
     Active Substance: POTASSIUM
     Route: 065
     Dates: start: 20170817, end: 20170821
  14. ESCITALOPRAM [Interacting]
     Active Substance: ESCITALOPRAM OXALATE
     Indication: DEPRESSION
     Route: 048
     Dates: start: 20170816, end: 20171005
  15. LAXOBERON [Concomitant]
     Active Substance: SODIUM PICOSULFATE
     Route: 065
     Dates: start: 20170822
  16. SERESTA [Suspect]
     Active Substance: OXAZEPAM
     Indication: ANXIETY
     Route: 048
     Dates: end: 20170814
  17. VALIUM [Suspect]
     Active Substance: DIAZEPAM
     Indication: PRODUCT USED FOR UNKNOWN INDICATION
     Dosage: STRENGTH OF EACH CAPSULE: 5 MG; DOSE: 3-6 CAPSULES
     Route: 048
     Dates: end: 20170814
  18. ANXIOLIT [Concomitant]
     Active Substance: OXAZEPAM
     Route: 065
     Dates: start: 20170816
  19. RISPERDAL [Suspect]
     Active Substance: RISPERIDONE
     Indication: PRODUCT USED FOR UNKNOWN INDICATION
     Route: 048
     Dates: start: 20170908, end: 20170910
  20. PRONTALGINE [Concomitant]
     Active Substance: ACETAMINOPHEN\AMOBARBITAL\CAFFEINE\CODEINE PHOSPHATE
     Route: 065
     Dates: end: 201707
  21. DAFALGAN [Concomitant]
     Active Substance: ACETAMINOPHEN
     Route: 065
     Dates: start: 20170827
  22. ATORVASTATIN [Concomitant]
     Active Substance: ATORVASTATIN
     Route: 065
     Dates: start: 20170821
  23. TORASEMIDE [Concomitant]
     Active Substance: TORSEMIDE
     Route: 065
     Dates: start: 20170920, end: 20171005
  24. BECOZYME C [Concomitant]
     Route: 065
     Dates: start: 20170911, end: 20170919
  25. SODIUM CHLORIDE. [Concomitant]
     Active Substance: SODIUM CHLORIDE
     Dosage: 0.9 PERCENT INJECTABLE PERFUSION
     Route: 065
     Dates: start: 20170814, end: 20170817
  26. COVERSUM [Concomitant]
     Active Substance: PERINDOPRIL
     Route: 065
     Dates: end: 20170814
  27. ENALAPRIL [Concomitant]
     Active Substance: ENALAPRIL
     Route: 065
     Dates: start: 20170818, end: 20170910
  28. QUETIAPIN [Suspect]
     Active Substance: QUETIAPINE
     Indication: PRODUCT USED FOR UNKNOWN INDICATION
     Route: 048
     Dates: start: 20170904
  29. BENERVA [Concomitant]
     Active Substance: THIAMINE
     Route: 065
     Dates: start: 20170911, end: 20170919
  30. VITAMIN D3 [Concomitant]
     Active Substance: CHOLECALCIFEROL
     Route: 065
     Dates: start: 20170818

REACTIONS (6)
  - Confusional state [Not Recovered/Not Resolved]
  - Condition aggravated [Recovered/Resolved]
  - Drug withdrawal syndrome [Recovered/Resolved]
  - Fall [Unknown]
  - Drug interaction [Unknown]
  - Hypotension [Unknown]

NARRATIVE: CASE EVENT DATE: 2017
